FAERS Safety Report 4697266-X (Version None)
Quarter: 2005Q2

REPORT INFORMATION
  Report Type: 
  Country: None (occurrence: None)
  Receive Date: 20050620
  Receipt Date: 20050603
  Transmission Date: 20051028
  Serious: Yes (Other)
  Sender: FDA-Public Use
  Company Number: DSA_60479_2005

PATIENT
  Age: 66 Year
  Sex: Male

DRUGS (11)
  1. ORSTANORM [Suspect]
     Dosage: DF PO
     Route: 048
  2. MADOPARK [Suspect]
     Dosage: DF
  3. MADOPARK QUICK [Suspect]
     Dosage: DF
  4. TASMAR [Suspect]
     Dosage: DF
     Dates: start: 20030101
  5. SIFROL [Suspect]
     Dosage: DF
  6. BETOLVEX [Concomitant]
  7. CLARITIN [Concomitant]
  8. DETROL [Concomitant]
  9. EFFEXOR [Concomitant]
  10. EGAZIL DURETTER [Concomitant]
  11. ASPIRIN [Concomitant]

REACTIONS (4)
  - FATIGUE [None]
  - PLEURAL FIBROSIS [None]
  - PULMONARY FIBROSIS [None]
  - WEIGHT DECREASED [None]
